FAERS Safety Report 10290567 (Version 4)
Quarter: 2014Q3

REPORT INFORMATION
  Report Type: Report from Study
  Country: GB (occurrence: GB)
  Receive Date: 20140710
  Receipt Date: 20140819
  Transmission Date: 20150326
  Serious: Yes (Other)
  Sender: FDA-Public Use
  Company Number: GB-B.I. PHARMACEUTICALS,INC./RIDGEFIELD-2011-UK-00155UK

PATIENT
  Age: 69 Year
  Sex: Male
  Weight: 105 kg

DRUGS (8)
  1. METOCLOPRAMIDE. [Concomitant]
     Active Substance: METOCLOPRAMIDE
     Indication: NAUSEA
     Dosage: DAILY DOSE: PRN
     Route: 048
     Dates: start: 20110204
  2. FLUCAN [Concomitant]
     Indication: ORAL CANDIDIASIS
     Dosage: DAILY DOSE : PRN
     Route: 048
     Dates: start: 20110106
  3. LOPERAMIDE [Concomitant]
     Active Substance: LOPERAMIDE
     Indication: DIARRHOEA
     Dosage: DAILY DOSE : PRN
     Route: 048
     Dates: start: 20110204
  4. LIBRIUM [Concomitant]
     Active Substance: CHLORDIAZEPOXIDE HYDROCHLORIDE
     Indication: ANXIETY
     Dosage: 20 MG
     Route: 048
     Dates: start: 1974
  5. XRT RADIOTHERAPY [Concomitant]
     Indication: GLIOBLASTOMA MULTIFORME
     Route: 065
     Dates: start: 20110204
  6. BIBW 2992 [Suspect]
     Active Substance: AFATINIB
     Indication: GLIOBLASTOMA MULTIFORME
     Dosage: DAILY DOSE - OP
     Route: 048
     Dates: start: 20110204, end: 20110215
  7. OMEPRAZOLE. [Concomitant]
     Active Substance: OMEPRAZOLE
     Indication: PROPHYLAXIS
     Dosage: 20 MG
     Route: 048
     Dates: start: 20101216
  8. DEXAMETHASONE. [Concomitant]
     Active Substance: DEXAMETHASONE
     Indication: GLIOBLASTOMA MULTIFORME
     Dosage: 4 MG
     Route: 048
     Dates: start: 20101216

REACTIONS (2)
  - Pulmonary embolism [Recovered/Resolved]
  - Alanine aminotransferase increased [Recovered/Resolved]

NARRATIVE: CASE EVENT DATE: 20110211
